FAERS Safety Report 13292156 (Version 1)
Quarter: 2017Q1

REPORT INFORMATION
  Report Type: Spontaneous
  Country: US (occurrence: US)
  Receive Date: 20170303
  Receipt Date: 20170303
  Transmission Date: 20170428
  Serious: Yes (Life-Threatening, Other)
  Sender: FDA-Public Use
  Company Number: None

PATIENT
  Age: 26 Year
  Sex: Male
  Weight: 69.75 kg

DRUGS (5)
  1. MELOXICAM. [Suspect]
     Active Substance: MELOXICAM
     Indication: THYROID DISORDER
     Dosage: ?          QUANTITY:20 TABLET(S);?
     Route: 048
     Dates: start: 20170104, end: 20170204
  2. PLEXUS EDGE [Concomitant]
  3. PLEXUS PROBIOTICS [Concomitant]
  4. NATROL BIOTIN [Concomitant]
  5. PLEXUS BIOCLEANSE [Concomitant]

REACTIONS (4)
  - Headache [None]
  - Mood swings [None]
  - Testicular pain [None]
  - Haemorrhage [None]

NARRATIVE: CASE EVENT DATE: 20170203
